FAERS Safety Report 4406705-0 (Version None)
Quarter: 2004Q3

REPORT INFORMATION
  Report Type: 
  Country: None (occurrence: None)
  Receive Date: 20040715
  Receipt Date: 20040706
  Transmission Date: 20050211
  Serious: Yes (Hospitalization, Other)
  Sender: FDA-Public Use
  Company Number: 2004-07-0083

PATIENT
  Age: 59 Year
  Sex: Female

DRUGS (6)
  1. VIRAFERONPEG [Suspect]
     Indication: HEPATITIS C
     Dosage: 120 MCG SUBCUTANEOUS
     Route: 058
  2. REBETOL [Suspect]
     Indication: HEPATITIS C
     Dosage: 1000 MG ORAL
     Route: 048
     Dates: start: 20040402
  3. THYROXINE I 125 [Concomitant]
  4. AMOXICILLIN AND CLAVULANATE POTASSIUM [Concomitant]
  5. HYDROCORTISONE [Concomitant]
  6. ANTIBIOTIC [Concomitant]

REACTIONS (9)
  - AUTOIMMUNE DISORDER [None]
  - BLOOD GLUCOSE ABNORMAL [None]
  - DIARRHOEA [None]
  - HAEMOGLOBIN DECREASED [None]
  - LIVER FUNCTION TEST ABNORMAL [None]
  - PLATELET COUNT DECREASED [None]
  - PULMONARY OEDEMA [None]
  - URINARY TRACT INFECTION [None]
  - VOMITING [None]
